FAERS Safety Report 18060994 (Version 1)
Quarter: 2020Q3

REPORT INFORMATION
  Report Type: Spontaneous
  Country: US (occurrence: US)
  Receive Date: 20200723
  Receipt Date: 20200723
  Transmission Date: 20201103
  Serious: No
  Sender: FDA-Public Use
  Company Number: US-TEVA-2020-US-1804106

PATIENT
  Sex: Female

DRUGS (12)
  1. ZOLPIDEM [Suspect]
     Active Substance: ZOLPIDEM TARTRATE
     Indication: INSOMNIA
     Dosage: AT BEDTIME
     Route: 065
  2. LOSARTAN. [Suspect]
     Active Substance: LOSARTAN
     Route: 065
  3. POTASSIUM [Suspect]
     Active Substance: POTASSIUM
     Route: 065
  4. CHOLESTYRAINE (COLESTYRAMINE) [Suspect]
     Active Substance: CHOLESTYRAMINE
     Dosage: EVERY OTHER DAY OR AS NEEDED
     Route: 065
  5. ELIQUIS [Suspect]
     Active Substance: APIXABAN
     Indication: ANTICOAGULANT THERAPY
  6. ELIQUIS [Suspect]
     Active Substance: APIXABAN
     Indication: ATRIAL FIBRILLATION
     Route: 065
  7. HYDROCODONE [Suspect]
     Active Substance: HYDROCODONE
     Dosage: 10/325MG
     Route: 065
  8. BUMETANIDE. [Suspect]
     Active Substance: BUMETANIDE
     Dosage: 0.5M EVERY OTHER DAY OR AS NEEDED
     Route: 065
  9. VERAPAMIL ER [Suspect]
     Active Substance: VERAPAMIL HYDROCHLORIDE
     Route: 065
  10. ESTRADIOL. [Concomitant]
     Active Substance: ESTRADIOL
     Route: 062
  11. PANTOPRAZOLE SODIUM. [Suspect]
     Active Substance: PANTOPRAZOLE SODIUM
     Route: 065
  12. SLOW MAG [Suspect]
     Active Substance: MAGNESIUM CHLORIDE
     Route: 065

REACTIONS (2)
  - Product solubility abnormal [Unknown]
  - Product residue present [Unknown]
